FAERS Safety Report 17449483 (Version 3)
Quarter: 2020Q3

REPORT INFORMATION
  Report Type: Report from Study
  Country: None (occurrence: CA)
  Receive Date: 20200224
  Receipt Date: 20200720
  Transmission Date: 20201102
  Serious: Yes (Hospitalization, Other)
  Sender: FDA-Public Use
  Company Number: CA-ABBVIE-20K-028-3286970-00

PATIENT
  Age: 42 Year
  Sex: Male

DRUGS (1)
  1. SKYRIZI [Suspect]
     Active Substance: RISANKIZUMAB-RZAA
     Indication: PSORIASIS
     Route: 058
     Dates: start: 20191022

REACTIONS (9)
  - Fall [Recovered/Resolved]
  - Head injury [Recovered/Resolved]
  - Seizure [Unknown]
  - Blood pressure increased [Recovered/Resolved]
  - Drug use disorder [Unknown]
  - Hepatic failure [Unknown]
  - Sleep disorder [Unknown]
  - Tremor [Not Recovered/Not Resolved]
  - Gait disturbance [Unknown]

NARRATIVE: CASE EVENT DATE: 2019
